FAERS Safety Report 24239378 (Version 1)
Quarter: 2024Q3

REPORT INFORMATION
  Report Type: Spontaneous
  Country: ES (occurrence: None)
  Receive Date: 20240822
  Receipt Date: 20240822
  Transmission Date: 20241016
  Serious: Yes (Life-Threatening, Hospitalization, Other)
  Sender: ASTRAZENECA
  Company Number: 2024A190941

PATIENT
  Age: 48 Year
  Sex: Female

DRUGS (10)
  1. QUETIAPINE [Suspect]
     Active Substance: QUETIAPINE
     Indication: Intentional overdose
     Dosage: 5.7GR ONCE/SINGLE ADMINISTRATION
     Route: 048
     Dates: start: 20240627, end: 20240627
  2. OMEPRAZOLE [Suspect]
     Active Substance: OMEPRAZOLE
  3. CLONAZEPAM [Suspect]
     Active Substance: CLONAZEPAM
     Indication: Intentional overdose
     Dosage: ONCE/SINGLE ADMINISTRATION
     Dates: start: 20240627, end: 20240627
  4. FLUMAZENIL [Suspect]
     Active Substance: FLUMAZENIL
  5. LORMETAZEPAM [Suspect]
     Active Substance: LORMETAZEPAM
     Indication: Intentional overdose
     Dosage: 118.0MG ONCE/SINGLE ADMINISTRATION
     Route: 048
     Dates: start: 20240627, end: 20240627
  6. ACETAMINOPHEN [Suspect]
     Active Substance: ACETAMINOPHEN
     Indication: Intentional overdose
     Dosage: 10.0MG ONCE/SINGLE ADMINISTRATION
     Route: 048
     Dates: start: 20240627, end: 20240627
  7. HALOPERIDOL [Suspect]
     Active Substance: HALOPERIDOL
     Indication: Intentional overdose
     Dosage: ONCE/SINGLE ADMINISTRATION
     Dates: start: 20240627, end: 20240627
  8. LAMOTRIGINE [Suspect]
     Active Substance: LAMOTRIGINE
     Indication: Intentional overdose
     Dosage: ONCE/SINGLE ADMINISTRATION
     Route: 048
     Dates: start: 20240627, end: 20240627
  9. ALLOPURINOL [Suspect]
     Active Substance: ALLOPURINOL
  10. EBASTINE [Suspect]
     Active Substance: EBASTINE

REACTIONS (3)
  - Depressed level of consciousness [Recovered/Resolved]
  - Intentional overdose [Recovered/Resolved]
  - Drug ineffective [Recovered/Resolved]

NARRATIVE: CASE EVENT DATE: 20240627
